FAERS Safety Report 11232138 (Version 1)
Quarter: 2015Q2

REPORT INFORMATION
  Report Type: Spontaneous
  Country: US (occurrence: None)
  Receive Date: 20150630
  Receipt Date: 20150630
  Transmission Date: 20150821
  Serious: No
  Sender: FDA-Public Use
  Company Number: None

PATIENT

DRUGS (2)
  1. FUROSEMIDE. [Suspect]
     Active Substance: FUROSEMIDE
     Dosage: IV OR IM USE  ?SINGLE DOSE VIAL ?2 ML
  2. KETOROLAC [Suspect]
     Active Substance: KETOROLAC\KETOROLAC TROMETHAMINE
     Dosage: IM OR IV USE?SINGLE DOSE VIAL?1 ML

REACTIONS (1)
  - Circumstance or information capable of leading to medication error [None]
